FAERS Safety Report 9458895 (Version 1)
Quarter: 2013Q3

REPORT INFORMATION
  Report Type: Spontaneous
  Country: FR (occurrence: FR)
  Receive Date: 20130814
  Receipt Date: 20130814
  Transmission Date: 20140515
  Serious: Yes (Hospitalization, Other)
  Sender: FDA-Public Use
  Company Number: FR-GLAXOSMITHKLINE-B0912372A

PATIENT
  Age: 65 Year
  Sex: Female

DRUGS (3)
  1. VENTOLINE [Suspect]
     Indication: DYSPNOEA
     Dosage: 2PUFF SINGLE DOSE
     Route: 055
     Dates: start: 20130609, end: 20130609
  2. EFFERALGAN [Concomitant]
  3. COTAREG [Concomitant]

REACTIONS (7)
  - Angioedema [Recovered/Resolved]
  - Dyspnoea [Unknown]
  - Rhinorrhoea [Unknown]
  - Salivary hypersecretion [Unknown]
  - Throat irritation [Unknown]
  - Speech disorder [Unknown]
  - Off label use [Unknown]
